FAERS Safety Report 4758471-7 (Version None)
Quarter: 2005Q3

REPORT INFORMATION
  Report Type: 
  Country: None (occurrence: None)
  Receive Date: 20050901
  Receipt Date: 20050824
  Transmission Date: 20060218
  Serious: Yes (Hospitalization, Other)
  Sender: FDA-Public Use
  Company Number: JP-JNJFOC-20050802346

PATIENT
  Sex: Female

DRUGS (15)
  1. REMICADE [Suspect]
     Route: 042
  2. REMICADE [Suspect]
     Indication: RHEUMATOID ARTHRITIS
     Route: 042
  3. PREDNISOLONE [Suspect]
     Indication: RHEUMATOID ARTHRITIS
     Route: 048
  4. METHOTREXATE [Suspect]
     Indication: RHEUMATOID ARTHRITIS
     Route: 048
  5. ISCOTIN [Concomitant]
     Indication: TUBERCULOSIS PROPHYLAXIS
     Dosage: AT THE PATIENT'S DISCRETION.
  6. ALTAT [Concomitant]
     Route: 048
  7. GASLON N [Concomitant]
     Route: 048
  8. FOLIAMIN [Concomitant]
     Route: 048
  9. CYANOCOBALAMIN [Concomitant]
     Route: 048
  10. DEPAS [Concomitant]
     Route: 048
  11. TIZANIN [Concomitant]
     Route: 048
  12. ROCALTROL [Concomitant]
     Dosage: DOSE = 0.5RG
     Route: 048
  13. MAGNESIUM OXIDE [Concomitant]
     Route: 048
  14. MOBIC [Concomitant]
     Indication: RHEUMATOID ARTHRITIS
     Route: 048
  15. BENET [Concomitant]
     Route: 048

REACTIONS (2)
  - PNEUMOCYSTIS JIROVECI PNEUMONIA [None]
  - PSEUDOMONAS INFECTION [None]
